FAERS Safety Report 9582015 (Version 2)
Quarter: 2013Q4

REPORT INFORMATION
  Report Type: Spontaneous
  Country: IT (occurrence: IT)
  Receive Date: 20131002
  Receipt Date: 20131118
  Transmission Date: 20140711
  Serious: Yes (Other)
  Sender: FDA-Public Use
  Company Number: IT-PFIZER INC-2013280282

PATIENT
  Age: 43 Year
  Sex: Female

DRUGS (6)
  1. XANAX [Suspect]
     Dosage: UNK
     Route: 048
  2. XANAX [Suspect]
     Dosage: UNK
     Route: 048
     Dates: start: 20130916, end: 20130916
  3. PAROXETINE [Suspect]
     Dosage: UNK
     Route: 048
  4. PAROXETINE [Suspect]
     Dosage: UNK
     Route: 048
     Dates: start: 20130916, end: 20130916
  5. MINIAS [Suspect]
     Dosage: UNK
     Route: 048
  6. MINIAS [Suspect]
     Dosage: UNK
     Route: 048
     Dates: start: 20130916, end: 20130916

REACTIONS (4)
  - Confusional state [Recovering/Resolving]
  - Oxygen saturation decreased [Recovering/Resolving]
  - Sopor [Recovering/Resolving]
  - Intentional self-injury [Recovering/Resolving]
